FAERS Safety Report 8257872-2 (Version None)
Quarter: 2012Q2

REPORT INFORMATION
  Report Type: 
  Country: None (occurrence: None)
  Receive Date: 20120404
  Receipt Date: 20120215
  Transmission Date: 20120825
  Serious: No
  Sender: FDA-Public Use
  Company Number: US-BAYER-2012-015699

PATIENT
  Age: 70 Year
  Sex: Female

DRUGS (2)
  1. AVELOX [Suspect]
     Indication: EAR INFECTION
     Dosage: 400 MG, UNK
     Route: 048
     Dates: start: 20120210, end: 20120210
  2. ALLEGRA-D 12 HOUR [Concomitant]

REACTIONS (2)
  - PALPITATIONS [None]
  - NERVOUSNESS [None]
